FAERS Safety Report 6293506-4 (Version None)
Quarter: 2009Q3

REPORT INFORMATION
  Report Type: 
  Country: None (occurrence: None)
  Receive Date: 20090803
  Receipt Date: 20070430
  Transmission Date: 20100115
  Serious: Yes (Other)
  Sender: FDA-Public Use
  Company Number: US-ASTRAZENECA-2006UW08280

PATIENT
  Age: 16595 Day
  Sex: Female
  Weight: 167.8 kg

DRUGS (31)
  1. SEROQUEL [Suspect]
     Indication: SCHIZOPHRENIA
     Dosage: 100-200 MG
     Route: 048
     Dates: start: 20000908
  2. SEROQUEL [Suspect]
     Indication: DEPRESSION
     Dosage: 100-200 MG
     Route: 048
     Dates: start: 20000908
  3. SEROQUEL [Suspect]
     Indication: SLEEP DISORDER
     Dosage: 100-200 MG
     Route: 048
     Dates: start: 20000908
  4. SEROQUEL [Suspect]
     Route: 048
     Dates: start: 20020101, end: 20050101
  5. SEROQUEL [Suspect]
     Route: 048
     Dates: start: 20020101, end: 20050101
  6. SEROQUEL [Suspect]
     Route: 048
     Dates: start: 20020101, end: 20050101
  7. ABILIFY [Concomitant]
  8. CLOZAPINE [Concomitant]
  9. GEODON [Concomitant]
  10. HALDOL [Concomitant]
  11. RISPERDAL [Concomitant]
  12. ZYPREXA [Concomitant]
  13. GLUCOPHAGE [Concomitant]
  14. COMBIVENT [Concomitant]
  15. HYDROXYZINE [Concomitant]
  16. DIOVAN [Concomitant]
  17. CLONAZEPAM [Concomitant]
  18. TOPAMAX [Concomitant]
  19. CELEXA [Concomitant]
  20. PROSOM [Concomitant]
  21. FUROSEMIDE [Concomitant]
  22. SINGULAIR [Concomitant]
  23. VYTORIN [Concomitant]
  24. AMBIEN [Concomitant]
  25. ELAVIL [Concomitant]
  26. XANAX [Concomitant]
  27. ADVAIR DISKUS 100/50 [Concomitant]
  28. INSULIN [Concomitant]
  29. BUSPIRONE HCL [Concomitant]
  30. ENALAPRIL MALEATE [Concomitant]
  31. DULOXETINE HYDROCHLORIDE [Concomitant]

REACTIONS (2)
  - DIABETES MELLITUS [None]
  - DIABETIC NEUROPATHY [None]
